FAERS Safety Report 9498986 (Version 4)
Quarter: 2013Q4

REPORT INFORMATION
  Report Type: Spontaneous
  Country: US (occurrence: US)
  Receive Date: 20130904
  Receipt Date: 20131018
  Transmission Date: 20140711
  Serious: Yes (Other)
  Sender: FDA-Public Use
  Company Number: ALCN2013US004416

PATIENT
  Age: 81 Year
  Sex: Female
  Weight: 87.75 kg

DRUGS (2)
  1. TEARS NATURALE FREE [Suspect]
     Indication: DRY EYE
     Dosage: UNK GTT, PRN
     Route: 047
     Dates: start: 20130814, end: 20130828
  2. COSOPT [Concomitant]

REACTIONS (6)
  - Corneal abrasion [Not Recovered/Not Resolved]
  - Eye infection [Not Recovered/Not Resolved]
  - Vision blurred [Not Recovered/Not Resolved]
  - Foreign body sensation in eyes [Not Recovered/Not Resolved]
  - Eye injury [Not Recovered/Not Resolved]
  - Product packaging issue [Not Recovered/Not Resolved]
